FAERS Safety Report 16132894 (Version 1)
Quarter: 2019Q1

REPORT INFORMATION
  Report Type: Spontaneous
  Country: US (occurrence: US)
  Receive Date: 20190329
  Receipt Date: 20190329
  Transmission Date: 20190418
  Serious: No
  Sender: FDA-Public Use
  Company Number: US-SA-2019SA081031

PATIENT
  Age: 15 Year
  Sex: Male

DRUGS (2)
  1. KETOCONAZOLE. [Concomitant]
     Active Substance: KETOCONAZOLE
  2. DUPIXENT [Suspect]
     Active Substance: DUPILUMAB
     Indication: DERMATITIS ATOPIC
     Dosage: 600 MG, 1X
     Route: 058
     Dates: start: 20190311, end: 20190311

REACTIONS (2)
  - Product administered to patient of inappropriate age [Unknown]
  - Fatigue [Unknown]

NARRATIVE: CASE EVENT DATE: 20190311
